FAERS Safety Report 9803044 (Version 2)
Quarter: 2014Q1

REPORT INFORMATION
  Report Type: Spontaneous
  Country: US (occurrence: US)
  Receive Date: 20140108
  Receipt Date: 20140218
  Transmission Date: 20141002
  Serious: No
  Sender: FDA-Public Use
  Company Number: US-009507513-1312USA012593

PATIENT
  Age: 51 Year
  Sex: Female
  Weight: 104.31 kg

DRUGS (4)
  1. DULERA [Suspect]
     Indication: ASTHMA
     Dosage: 2 PUFFS EACH MORNING AND EACH NIGHT
     Route: 055
     Dates: start: 2011
  2. DULERA [Suspect]
     Dosage: EXTRA PUFF OCCASIONALLY IN THE EVENING
     Route: 055
     Dates: start: 2013
  3. NASONEX [Concomitant]
     Route: 045
  4. Z-PAK [Concomitant]

REACTIONS (5)
  - Cough [Recovering/Resolving]
  - Product taste abnormal [Unknown]
  - Product quality issue [Unknown]
  - Incorrect dose administered [Unknown]
  - Overdose [Unknown]
